FAERS Safety Report 6340528-0 (Version None)
Quarter: 2009Q3

REPORT INFORMATION
  Report Type: 
  Country: None (occurrence: None)
  Receive Date: 20090904
  Receipt Date: 20090828
  Transmission Date: 20100115
  Serious: Yes (Other)
  Sender: FDA-Public Use
  Company Number: BR-JNJFOC-20090900559

PATIENT
  Age: 22 Year
  Sex: Female
  Weight: 53 kg

DRUGS (3)
  1. ORTHO EVRA [Suspect]
     Route: 062
  2. ORTHO EVRA [Suspect]
     Indication: CONTRACEPTION
     Dosage: ETHINYL ESTRADIOL 0.6 MG/ NORELGESTROMIN 6 MG
     Route: 062
  3. HOMEOPATHIC DRUG [Concomitant]
     Indication: ANXIETY
     Route: 065

REACTIONS (14)
  - ANXIETY [None]
  - APPLICATION SITE HYPERSENSITIVITY [None]
  - APPLICATION SITE PRURITUS [None]
  - APPLICATION SITE VESICLES [None]
  - DRUG PRESCRIBING ERROR [None]
  - GENITAL HERPES [None]
  - MENORRHAGIA [None]
  - METRORRHAGIA [None]
  - MIGRAINE [None]
  - OFF LABEL USE [None]
  - PAPILLOMA VIRAL INFECTION [None]
  - PRODUCT QUALITY ISSUE [None]
  - VULVOVAGINAL CANDIDIASIS [None]
  - WRONG TECHNIQUE IN DRUG USAGE PROCESS [None]
